FAERS Safety Report 7642363-X (Version None)
Quarter: 2011Q3

REPORT INFORMATION
  Report Type: 
  Country: None (occurrence: None)
  Receive Date: 20110728
  Receipt Date: 20110711
  Transmission Date: 20111222
  Serious: No
  Sender: FDA-Public Use
  Company Number: US-B.I. PHARMACEUTICALS,INC./RIDGEFIELD-2010-BP-11263BP

PATIENT
  Age: 72 Year
  Sex: Male

DRUGS (5)
  1. SPIRIVA [Suspect]
     Indication: CHRONIC OBSTRUCTIVE PULMONARY DISEASE
     Dosage: 18 MCG
     Route: 055
     Dates: start: 20070101
  2. SPIRIVA [Suspect]
     Indication: TOBACCO USER
  3. DILTIAZEM [Concomitant]
     Indication: HYPERTENSION
     Dosage: 240 MG
     Route: 048
  4. PREDNISONE [Concomitant]
     Dosage: 18 MG
  5. LASIX [Concomitant]
     Dosage: 80 MG

REACTIONS (3)
  - BLOOD TEST ABNORMAL [None]
  - GLAUCOMA [None]
  - DRY EYE [None]
